FAERS Safety Report 16271532 (Version 1)
Quarter: 2019Q2

REPORT INFORMATION
  Report Type: Spontaneous
  Country: SE (occurrence: SE)
  Receive Date: 20190503
  Receipt Date: 20190503
  Transmission Date: 20190711
  Serious: Yes (Hospitalization)
  Sender: FDA-Public Use
  Company Number: SE-TEVA-2019-SE-1043989

PATIENT
  Age: 32 Year
  Sex: Male

DRUGS (1)
  1. LOPERAMIDE [Suspect]
     Active Substance: LOPERAMIDE
     Dosage: 98 PCS EVERY DAY FOR TWO WEEKS
     Route: 048
     Dates: start: 201903, end: 201903

REACTIONS (5)
  - Paraesthesia [Unknown]
  - Pain [Unknown]
  - Hyperhidrosis [Unknown]
  - Drug abuse [Unknown]
  - Intentional overdose [Unknown]

NARRATIVE: CASE EVENT DATE: 201903
